FAERS Safety Report 4915854-X (Version None)
Quarter: 2006Q1

REPORT INFORMATION
  Report Type: 
  Country: None (occurrence: None)
  Receive Date: 20060214
  Receipt Date: 20060201
  Transmission Date: 20060701
  Serious: Yes (Hospitalization, Other)
  Sender: FDA-Public Use
  Company Number: 2006017019

PATIENT
  Age: 55 Year
  Sex: Female

DRUGS (15)
  1. CELEBREX [Suspect]
     Indication: ARTHRALGIA
     Dosage: 200 MG (200 MG, 1 IN 1 D), ORAL
     Route: 048
  2. FUROSEMIDE [Concomitant]
  3. CLONIDINE [Concomitant]
  4. POTASSIUM CHLORIDE [Concomitant]
  5. LEVODOPA-CARBIDOPA (CARBIDOPA, LEVODOPA) [Concomitant]
  6. DIGOXIN [Concomitant]
  7. DILTIAZEM [Concomitant]
  8. TRAMADOL (TRAMADOL) [Concomitant]
  9. DETROL [Concomitant]
  10. NEXIUM [Concomitant]
  11. ZAROXOLYN [Concomitant]
  12. HUMALOG [Concomitant]
  13. LANTUS [Concomitant]
  14. MULTIVITAMIN [Concomitant]
  15. ALL OTHER THERAPEUTIC PRODUCTS (ALL OTHER THERAPEUTIC PRODUCTS) [Concomitant]

REACTIONS (11)
  - ANAEMIA [None]
  - ASTHENIA [None]
  - BLOOD DISORDER [None]
  - CARDIAC DISORDER [None]
  - CARDIAC FAILURE CONGESTIVE [None]
  - CORONARY ARTERY DISEASE [None]
  - FATIGUE [None]
  - HAEMORRHAGE [None]
  - LABORATORY TEST ABNORMAL [None]
  - LIMB INJURY [None]
  - OESOPHAGEAL PAIN [None]
